FAERS Safety Report 7081444-9 (Version None)
Quarter: 2010Q4

REPORT INFORMATION
  Report Type: 
  Country: None (occurrence: None)
  Receive Date: 20101103
  Receipt Date: 20101022
  Transmission Date: 20110411
  Serious: Yes (Hospitalization)
  Sender: FDA-Public Use
  Company Number: NO-WATSON-2010-11122

PATIENT
  Age: 42 Year
  Sex: Female
  Weight: 87 kg

DRUGS (6)
  1. PROMETHAZINE HCL  (WATSON LABORATORIES) [Suspect]
     Dosage: 625 MG, SINGLE
     Route: 048
  2. LAMOTRIGINE (WATSON LABORATORIES) [Suspect]
     Dosage: UNK
     Route: 048
  3. CITALOPRAM HYDROBROMIDE [Suspect]
     Indication: PRODUCT USED FOR UNKNOWN INDICATION
     Dosage: 10 MG, DAILY
     Route: 048
  4. ACETYLSALICYLIC ACID [Suspect]
     Dosage: 75 MG, DAILY
     Route: 048
  5. DALTEPARIN SODIUM [Suspect]
     Indication: DEEP VEIN THROMBOSIS
     Dosage: 17 DOSES OF 12,500 IE (TOTALLY 212,500 IE)
     Route: 058
  6. DALTEPARIN SODIUM [Suspect]
     Dosage: 10.000 IU + 7500 IU /D FOR ONE MONTH

REACTIONS (4)
  - ACTIVATED PARTIAL THROMBOPLASTIN TIME PROLONGED [None]
  - POISONING DELIBERATE [None]
  - SOMNOLENCE [None]
  - SUICIDE ATTEMPT [None]
